FAERS Safety Report 6654179-1 (Version None)
Quarter: 2010Q1

REPORT INFORMATION
  Report Type: 
  Country: None (occurrence: None)
  Receive Date: 20100326
  Receipt Date: 20100317
  Transmission Date: 20100710
  Serious: Yes (Other)
  Sender: FDA-Public Use
  Company Number: US-AMGEN-TCS391516

PATIENT
  Sex: Female

DRUGS (3)
  1. ENBREL [Suspect]
     Indication: PSORIASIS
     Route: 058
     Dates: start: 20081208, end: 20100201
  2. NORVASC [Concomitant]
  3. QUINAPRIL HYDROCHLORIDE [Concomitant]

REACTIONS (3)
  - VAGINAL HAEMORRHAGE [None]
  - VAGINAL NEOPLASM [None]
  - VAGINAL POLYP [None]
